FAERS Safety Report 7928565-3 (Version None)
Quarter: 2011Q4

REPORT INFORMATION
  Report Type: 
  Country: None (occurrence: None)
  Receive Date: 20111118
  Receipt Date: 20111116
  Transmission Date: 20120403
  Serious: Yes (Death)
  Sender: FDA-Public Use
  Company Number: GW-ABBOTT-11P-071-0874755-00

PATIENT
  Sex: Female
  Weight: 70 kg

DRUGS (6)
  1. FOLIC ACID [Concomitant]
     Indication: VITAMIN SUPPLEMENTATION
     Route: 048
     Dates: start: 20110517
  2. COTRIM [Concomitant]
     Indication: PROPHYLAXIS
     Route: 048
     Dates: start: 20110517
  3. ZIDOVUDINE [Concomitant]
     Indication: HIV INFECTION
     Route: 048
     Dates: start: 20110517, end: 20110803
  4. KALETRA [Suspect]
     Indication: HIV INFECTION
     Dosage: 800MG/200MG; 200MG/5MG-2 TABLETS TWICE A DAY
     Route: 048
     Dates: start: 20110517
  5. ABACAVIR [Concomitant]
     Indication: HIV INFECTION
     Route: 048
     Dates: start: 20110804
  6. LAMIVUDINE [Concomitant]
     Indication: HIV INFECTION
     Route: 048
     Dates: start: 20110517

REACTIONS (3)
  - SYPHILIS [None]
  - CACHEXIA [None]
  - PYREXIA [None]
